FAERS Safety Report 4385815-0 (Version None)
Quarter: 2004Q2

REPORT INFORMATION
  Report Type: 
  Country: None (occurrence: None)
  Receive Date: 20040623
  Receipt Date: 20040610
  Transmission Date: 20050107
  Serious: Yes (Other)
  Sender: FDA-Public Use
  Company Number: 207130

PATIENT
  Age: 68 Year
  Sex: Female

DRUGS (7)
  1. MABTHERA (RITUXIMAB) CONC FOR SOLUTION FOR INFUSION [Suspect]
     Indication: HAEMOLYTIC ANAEMIA
     Dosage: 600 MG, 1/WEEK, INTRAVENOUS
     Route: 042
     Dates: start: 20040407, end: 20040430
  2. FOLACIN (FOLIC ACID) [Concomitant]
  3. PANODIL (ACETAMINOPHEN) [Concomitant]
  4. SOLU-CORTEF [Concomitant]
  5. TAVEGYL (CLEMASTINE FUMARATE) [Concomitant]
  6. ATENOLOL [Concomitant]
  7. IDEOS CPR (CALCIUM CARBONATE, CHOLECALCIFEROL) [Concomitant]

REACTIONS (7)
  - ANAEMIA [None]
  - DIZZINESS [None]
  - DYSSTASIA [None]
  - HEARING IMPAIRED [None]
  - INNER EAR DISORDER [None]
  - NYSTAGMUS [None]
  - TINNITUS [None]
